FAERS Safety Report 15351729 (Version 1)
Quarter: 2018Q3

REPORT INFORMATION
  Report Type: Spontaneous
  Country: US (occurrence: US)
  Receive Date: 20180905
  Receipt Date: 20180905
  Transmission Date: 20181010
  Serious: No
  Sender: FDA-Public Use
  Company Number: US-SA-2018SA233405

PATIENT

DRUGS (1)
  1. ARAVA [Suspect]
     Active Substance: LEFLUNOMIDE
     Route: 065

REACTIONS (9)
  - Rash [Unknown]
  - Catheterisation cardiac [Unknown]
  - Cardiac disorder [Unknown]
  - Pruritus [Unknown]
  - Anxiety [Unknown]
  - Dyspnoea [Unknown]
  - Overweight [Unknown]
  - Depression [Unknown]
  - Arthralgia [Unknown]
